FAERS Safety Report 6511266-6 (Version None)
Quarter: 2009Q4

REPORT INFORMATION
  Report Type: 
  Country: None (occurrence: None)
  Receive Date: 20091222
  Receipt Date: 20090320
  Transmission Date: 20100525
  Serious: No
  Sender: FDA-Public Use
  Company Number: US-ASTRAZENECA-2009UW07195

PATIENT
  Age: 58 Year
  Sex: Female
  Weight: 104.3 kg

DRUGS (7)
  1. CRESTOR [Suspect]
     Route: 048
  2. CRESTOR [Suspect]
     Route: 048
  3. GLUCOPHAGE [Concomitant]
     Indication: DIABETES MELLITUS
  4. DIOVAN HCT [Concomitant]
     Indication: HYPERTENSION
  5. CARVEDILOL [Concomitant]
     Indication: HYPERTENSION
  6. NAPROXEN [Concomitant]
     Indication: ARTHRITIS
  7. MULTI-VITAMIN [Concomitant]
     Indication: SUPPLEMENTATION THERAPY

REACTIONS (1)
  - BLISTER [None]
